FAERS Safety Report 8007653-X (Version None)
Quarter: 2011Q4

REPORT INFORMATION
  Report Type: 
  Country: None (occurrence: None)
  Receive Date: 20111227
  Receipt Date: 20111102
  Transmission Date: 20120403
  Serious: Yes (Death)
  Sender: FDA-Public Use
  Company Number: US-PURDUE-USA-2011-0079911

PATIENT
  Sex: Female

DRUGS (3)
  1. OXYCONTIN [Suspect]
     Indication: EPSTEIN-BARR VIRAEMIA
  2. OXYCONTIN [Suspect]
     Indication: FIBROMYALGIA
     Dosage: UNK
     Dates: start: 19990115, end: 20030522
  3. OXYCONTIN [Suspect]
     Indication: RESTLESS LEGS SYNDROME

REACTIONS (1)
  - DEATH [None]
